FAERS Safety Report 12907312 (Version 2)
Quarter: 2016Q4

REPORT INFORMATION
  Report Type: Spontaneous
  Country: US (occurrence: US)
  Receive Date: 20161103
  Receipt Date: 20161116
  Transmission Date: 20170207
  Serious: Yes (Other)
  Sender: FDA-Public Use
  Company Number: US-009507513-1610USA016687

PATIENT
  Sex: Male

DRUGS (2)
  1. ZEPATIER [Suspect]
     Active Substance: ELBASVIR\GRAZOPREVIR
     Indication: HEPATITIS C
     Dosage: 1 TABLET, DAILY, FOR 12 WEEKS
     Route: 048
     Dates: start: 20160725
  2. ASPIRIN. [Concomitant]
     Active Substance: ASPIRIN
     Dosage: 1 DF, DAILY

REACTIONS (3)
  - Decreased appetite [Recovered/Resolved]
  - Abnormal dreams [Recovered/Resolved]
  - Haemorrhagic ascites [Recovered/Resolved]

NARRATIVE: CASE EVENT DATE: 2016
